FAERS Safety Report 4345683-X (Version None)
Quarter: 2004Q2

REPORT INFORMATION
  Report Type: 
  Country: None (occurrence: None)
  Receive Date: 20040421
  Receipt Date: 20040408
  Transmission Date: 20050107
  Serious: Yes (Other)
  Sender: FDA-Public Use
  Company Number: 2004025168

PATIENT
  Sex: Female

DRUGS (2)
  1. GEODON [Suspect]
     Indication: ILL-DEFINED DISORDER
  2. LITHIUM CARBONATE [Suspect]
     Indication: ILL-DEFINED DISORDER

REACTIONS (2)
  - OVERDOSE [None]
  - TACHYCARDIA [None]
